FAERS Safety Report 5292675-2 (Version None)
Quarter: 2007Q2

REPORT INFORMATION
  Report Type: 
  Country: None (occurrence: None)
  Receive Date: 20070404
  Receipt Date: 20070328
  Transmission Date: 20071010
  Serious: No
  Sender: FDA-Public Use
  Company Number: 0702-SPO-VANT-0020

PATIENT
  Age: 88 Year
  Sex: Male
  Weight: 87.0906 kg

DRUGS (6)
  1. VANTAS [Suspect]
     Indication: PROSTATE CANCER
     Dosage: 50 MG, 1 IN 1 Y, SUB Q. IMPLANT
     Route: 058
     Dates: start: 20060315, end: 20070131
  2. ASPIRIN [Concomitant]
  3. DIOVAN HCT (CO-DIOVAN) [Concomitant]
  4. CRESTOR [Concomitant]
  5. METFORMIN HCL [Concomitant]
  6. CASODEX [Concomitant]

REACTIONS (3)
  - CAROTID ARTERY OCCLUSION [None]
  - CEREBROVASCULAR ACCIDENT [None]
  - OEDEMA PERIPHERAL [None]
